FAERS Safety Report 5202728-2 (Version None)
Quarter: 2006Q4

REPORT INFORMATION
  Report Type: 
  Country: None (occurrence: None)
  Receive Date: 20061016
  Receipt Date: 20060826
  Transmission Date: 20070319
  Serious: No
  Sender: FDA-Public Use
  Company Number: 2006SP003133

PATIENT
  Age: 39 Year
  Sex: Female
  Weight: 95.2554 kg

DRUGS (1)
  1. LUNESTA [Suspect]
     Indication: INITIAL INSOMNIA
     Dosage: ORAL
     Route: 048
     Dates: start: 20050801

REACTIONS (4)
  - ANOREXIA [None]
  - DYSGEUSIA [None]
  - RETCHING [None]
  - VOMITING [None]
